FAERS Safety Report 8826284 (Version 1)
Quarter: 2012Q4

REPORT INFORMATION
  Report Type: 
  Country: US (occurrence: US)
  Receive Date: 20121008
  Receipt Date: 20121008
  Transmission Date: 20130627
  Serious: No
  Sender: FDA-Public Use
  Company Number: US-GLAXOSMITHKLINE-A0982162A

PATIENT
  Sex: Female

DRUGS (2)
  1. POTIGA [Suspect]
     Indication: CONVULSION
     Dosage: 100MG Three times per day
     Route: 048
     Dates: start: 201206, end: 201206
  2. SEIZURE MEDICATION [Concomitant]
     Indication: CONVULSION

REACTIONS (1)
  - Urinary retention [Recovered/Resolved]
